FAERS Safety Report 4515301-6 (Version None)
Quarter: 2004Q4

REPORT INFORMATION
  Report Type: 
  Country: None (occurrence: None)
  Receive Date: 20041201
  Receipt Date: 20041126
  Transmission Date: 20050328
  Serious: Yes (Other)
  Sender: FDA-Public Use
  Company Number: GB-BRISTOL-MYERS SQUIBB COMPANY-12776464

PATIENT
  Age: 47 Year
  Sex: Male
  Weight: 48 kg

DRUGS (6)
  1. SUSTIVA [Suspect]
     Indication: HIV INFECTION
     Route: 048
     Dates: start: 20040213, end: 20040511
  2. ATAZANAVIR [Concomitant]
     Indication: HIV INFECTION
     Route: 048
     Dates: start: 20040920
  3. TENOFOVIR DISOPROXIL FUMARATE [Concomitant]
     Indication: HIV INFECTION
     Route: 048
     Dates: start: 20040212
  4. EMTRICITABINE [Concomitant]
     Indication: HIV INFECTION
     Dosage: INTERRUPTED ON 04-MAR-2004, RESTARTED ON 23-SEP-2004.
     Route: 048
     Dates: start: 20040213
  5. LAMIVUDINE [Concomitant]
     Indication: HIV INFECTION
     Route: 048
     Dates: start: 20040304, end: 20040923
  6. RITONAVIR [Concomitant]
     Indication: HIV INFECTION
     Route: 048
     Dates: start: 20040923

REACTIONS (2)
  - HEPATITIS [None]
  - NEUTROPENIA [None]
